FAERS Safety Report 6222088-8 (Version None)
Quarter: 2009Q2

REPORT INFORMATION
  Report Type: 
  Country: None (occurrence: None)
  Receive Date: 20090611
  Receipt Date: 20090609
  Transmission Date: 20091009
  Serious: Yes (Life-Threatening)
  Sender: FDA-Public Use
  Company Number: FR-ASTRAZENECA-2009CG01202

PATIENT
  Age: 64 Year
  Sex: Male

DRUGS (3)
  1. LITHIUM [Suspect]
     Indication: BIPOLAR I DISORDER
     Route: 048
  2. ZOLMITRIPTAN [Suspect]
     Route: 048
  3. LEVOTHYROXINE [Suspect]

REACTIONS (1)
  - INTENTIONAL OVERDOSE [None]
